FAERS Safety Report 9189854 (Version 1)
Quarter: 2013Q1

REPORT INFORMATION
  Report Type: Report from Study
  Country: AU (occurrence: AU)
  Receive Date: 20130326
  Receipt Date: 20130326
  Transmission Date: 20140127
  Serious: Yes (Other)
  Sender: FDA-Public Use
  Company Number: PHHY2013AU027584

PATIENT
  Age: 39 None
  Sex: Male

DRUGS (10)
  1. EXJADE [Suspect]
     Indication: THALASSAEMIA
     Dosage: 1000 MG, UNK
     Route: 048
     Dates: start: 20100901
  2. ZYPREXA [Concomitant]
  3. LITHIUM [Concomitant]
  4. COVERSYL [Concomitant]
  5. BICOR [Concomitant]
  6. FOLIC ACID [Concomitant]
  7. THYROXINE [Concomitant]
  8. LEXAPRO [Concomitant]
  9. CALCIUM [Concomitant]
     Indication: PROPHYLAXIS
  10. OSTEVIT-D [Concomitant]
     Indication: PROPHYLAXIS

REACTIONS (10)
  - Suicidal ideation [Unknown]
  - Splenomegaly [Unknown]
  - Gastroenteritis [Unknown]
  - Nephrolithiasis [Unknown]
  - Vomiting [Unknown]
  - Diarrhoea [Unknown]
  - Malaise [Unknown]
  - Cough [Unknown]
  - Pruritus [Unknown]
  - Rash [Recovered/Resolved]
